FAERS Safety Report 18277133 (Version 1)
Quarter: 2020Q3

REPORT INFORMATION
  Report Type: Spontaneous
  Country: US (occurrence: US)
  Receive Date: 20200917
  Receipt Date: 20200917
  Transmission Date: 20201103
  Serious: No
  Sender: FDA-Public Use
  Company Number: US-ALLERGAN-2015743US

PATIENT
  Age: 67 Year
  Sex: Male

DRUGS (1)
  1. CARAFATE [Suspect]
     Active Substance: SUCRALFATE
     Indication: OESOPHAGEAL ULCER
     Dosage: 10 ML, TID
     Route: 048
     Dates: start: 20200409

REACTIONS (6)
  - Blood glucose increased [Not Recovered/Not Resolved]
  - Cough [Unknown]
  - Increased upper airway secretion [Unknown]
  - Bronchospasm [Unknown]
  - Pharyngeal swelling [Unknown]
  - Dyspnoea [Unknown]
